FAERS Safety Report 8074436-4 (Version None)
Quarter: 2012Q1

REPORT INFORMATION
  Report Type: 
  Country: None (occurrence: None)
  Receive Date: 20120126
  Receipt Date: 20120123
  Transmission Date: 20120608
  Serious: Yes (Life-Threatening, Hospitalization)
  Sender: FDA-Public Use
  Company Number: DE-GLAXOSMITHKLINE-D0073907A

PATIENT
  Sex: Female

DRUGS (3)
  1. NON STEROIDAL ANTI-INFLAMMATORY DRUG [Suspect]
     Route: 065
  2. AZILECT [Concomitant]
     Indication: PARKINSONISM
     Dosage: 1MG PER DAY
     Route: 065
     Dates: start: 20080101
  3. REQUIP [Suspect]
     Indication: PARKINSONISM
     Dosage: 6MG PER DAY
     Route: 048
     Dates: start: 20101001, end: 20111201

REACTIONS (4)
  - DOPAMINE DYSREGULATION SYNDROME [None]
  - PARTNER STRESS [None]
  - HYPERSEXUALITY [None]
  - SUICIDE ATTEMPT [None]
